FAERS Safety Report 6924233-5 (Version None)
Quarter: 2010Q3

REPORT INFORMATION
  Report Type: 
  Country: None (occurrence: None)
  Receive Date: 20100811
  Receipt Date: 20100811
  Transmission Date: 20110219
  Serious: Yes (Other)
  Sender: FDA-Public Use
  Company Number: None

PATIENT
  Sex: Female
  Weight: 64.8644 kg

DRUGS (1)
  1. CEPHALEXIN [Suspect]
     Indication: FOLLICULITIS
     Dosage: 1 CAPSULE 250MG TWICE DAILY BY MOUTH
     Dates: start: 20081003, end: 20081008

REACTIONS (4)
  - ACARODERMATITIS [None]
  - CONDITION AGGRAVATED [None]
  - DRUG HYPERSENSITIVITY [None]
  - FOLLICULITIS [None]
